FAERS Safety Report 18997471 (Version 1)
Quarter: 2021Q1

REPORT INFORMATION
  Report Type: Spontaneous
  Country: CA (occurrence: CA)
  Receive Date: 20210311
  Receipt Date: 20210311
  Transmission Date: 20210420
  Serious: Yes (Death)
  Sender: FDA-Public Use
  Company Number: CA-ROCHE-2781689

PATIENT
  Age: 67 Year
  Sex: Male

DRUGS (1)
  1. CAPECITABINE. [Suspect]
     Active Substance: CAPECITABINE
     Indication: RECTAL CANCER
     Route: 041

REACTIONS (7)
  - Acute kidney injury [Fatal]
  - Cardiac arrest [Fatal]
  - Diarrhoea [Fatal]
  - Neutropenia [Fatal]
  - Shock [Fatal]
  - Sepsis [Fatal]
  - Diabetic ketoacidosis [Fatal]
